FAERS Safety Report 19938797 (Version 2)
Quarter: 2022Q1

REPORT INFORMATION
  Report Type: Spontaneous
  Country: CN (occurrence: CN)
  Receive Date: 20211011
  Receipt Date: 20220201
  Transmission Date: 20220424
  Serious: Yes (Hospitalization, Other)
  Sender: FDA-Public Use
  Company Number: CN-ABBVIE-21K-035-4111116-00

PATIENT
  Age: 3 Year
  Sex: Male

DRUGS (4)
  1. VALPROATE SODIUM [Interacting]
     Active Substance: VALPROATE SODIUM
     Indication: Product used for unknown indication
     Route: 048
  2. SABRIL [Interacting]
     Active Substance: VIGABATRIN
     Indication: Product used for unknown indication
     Route: 048
  3. MIDAZOLAM [Concomitant]
     Active Substance: MIDAZOLAM
     Indication: Product used for unknown indication
  4. DIAZEPAM [Concomitant]
     Active Substance: DIAZEPAM
     Indication: Product used for unknown indication

REACTIONS (4)
  - Drug interaction [Unknown]
  - Loss of consciousness [Recovered/Resolved]
  - Hyperammonaemic encephalopathy [Unknown]
  - Muscle twitching [Recovered/Resolved]
